FAERS Safety Report 8621797-0 (Version None)
Quarter: 2012Q3

REPORT INFORMATION
  Report Type: 
  Country: None (occurrence: None)
  Receive Date: 20120821
  Receipt Date: 20120821
  Transmission Date: 20120928
  Serious: No
  Sender: FDA-Public Use
  Company Number: None

PATIENT
  Age: 32 Year
  Sex: Male
  Weight: 63.5036 kg

DRUGS (1)
  1. NUVIGIL [Suspect]
     Indication: FATIGUE
     Dosage: 250MG TAKEN 1/2 MORNING AND 1/2 AT 2PM, PO
     Route: 048
     Dates: start: 20120817, end: 20120819

REACTIONS (3)
  - PSYCHOTIC DISORDER [None]
  - DEPRESSION [None]
  - SUICIDAL IDEATION [None]
